FAERS Safety Report 7263500-5 (Version None)
Quarter: 2011Q1

REPORT INFORMATION
  Report Type: 
  Country: None (occurrence: None)
  Receive Date: 20110130
  Receipt Date: 20101201
  Transmission Date: 20110831
  Serious: No
  Sender: FDA-Public Use
  Company Number: US-ABBOTT-10P-163-0689392-00

PATIENT
  Weight: 108.96 kg

DRUGS (7)
  1. HUMIRA [Suspect]
     Indication: PSORIASIS
     Route: 058
     Dates: start: 20090101
  2. CLOBEX [Concomitant]
     Indication: PSORIASIS
     Route: 061
  3. XANAX [Concomitant]
     Indication: PANIC ATTACK
  4. TYCLONIX [Concomitant]
     Indication: PSORIASIS
     Route: 061
  5. LISINOPRIL [Concomitant]
     Indication: HYPERTENSION
  6. DESOXIMETASONE [Concomitant]
     Indication: PSORIASIS
  7. SEROQUEL [Concomitant]
     Indication: DEPRESSION

REACTIONS (1)
  - BREATH ALCOHOL TEST POSITIVE [None]
